FAERS Safety Report 4814201-1 (Version None)
Quarter: 2005Q4

REPORT INFORMATION
  Report Type: 
  Country: None (occurrence: None)
  Receive Date: 20051028
  Receipt Date: 20051019
  Transmission Date: 20060501
  Serious: Yes (Hospitalization)
  Sender: FDA-Public Use
  Company Number: PHNR2005AU01540

PATIENT
  Age: 11 Month
  Sex: Male

DRUGS (2)
  1. ACETAMINOPHEN [Concomitant]
  2. ELIDEL [Suspect]
     Indication: ECZEMA

REACTIONS (2)
  - NEUTROPENIA [None]
  - RASH [None]
